FAERS Safety Report 9747643 (Version 2)
Quarter: 2013Q4

REPORT INFORMATION
  Report Type: Spontaneous
  Country: US (occurrence: US)
  Receive Date: 20131212
  Receipt Date: 20131217
  Transmission Date: 20140711
  Serious: Yes (Other)
  Sender: FDA-Public Use
  Company Number: US-JNJFOC-20131202362

PATIENT
  Sex: Female

DRUGS (2)
  1. BENADRYL DYE FREE LIQUID GELS [Suspect]
     Indication: ANAPHYLACTIC SHOCK
     Route: 065
  2. BENADRYL CHILD ALLERGY CHERRY LIQUID [Suspect]
     Indication: ANAPHYLACTIC SHOCK
     Route: 065

REACTIONS (2)
  - Condition aggravated [Unknown]
  - Off label use [Unknown]
